FAERS Safety Report 6153187-7 (Version None)
Quarter: 2009Q2

REPORT INFORMATION
  Report Type: 
  Country: None (occurrence: None)
  Receive Date: 20090413
  Receipt Date: 20090403
  Transmission Date: 20091009
  Serious: Yes (Hospitalization)
  Sender: FDA-Public Use
  Company Number: US-ABBOTT-09P-163-0566310-00

PATIENT
  Sex: Male
  Weight: 72.64 kg

DRUGS (1)
  1. HUMIRA [Suspect]
     Indication: COLITIS ULCERATIVE
     Route: 058
     Dates: start: 20081001, end: 20090112

REACTIONS (2)
  - INTESTINAL RESECTION [None]
  - POST PROCEDURAL INFECTION [None]
